FAERS Safety Report 7913241 (Version 2)
Quarter: 2013Q2

REPORT INFORMATION
  Report Type: Spontaneous
  Country: MX (occurrence: MX)
  Receive Date: 20110425
  Receipt Date: 20130404
  Transmission Date: 20140414
  Serious: Yes (Hospitalization, Other)
  Sender: FDA-Public Use
  Company Number: PHHY2010MX47812

PATIENT
  Age: 27 Year
  Sex: Female

DRUGS (4)
  1. TRILEPTAL [Suspect]
     Indication: EPILEPSY
     Dosage: 2 DF, QD
     Route: 048
     Dates: start: 20100105
  2. TRILEPTAL [Suspect]
     Dosage: 3 DF, QD
     Route: 048
     Dates: start: 20100707
  3. TRILEPTAL [Suspect]
     Dosage: 5 DF, QD
     Route: 048
     Dates: start: 20110317
  4. EPAMIN [Concomitant]
     Dosage: 1 DF, QD
     Route: 048
     Dates: start: 20100707

REACTIONS (2)
  - Petit mal epilepsy [Unknown]
  - Convulsion [Recovered/Resolved with Sequelae]
